FAERS Safety Report 9345633 (Version 1)
Quarter: 2013Q2

REPORT INFORMATION
  Report Type: Spontaneous
  Country: US (occurrence: US)
  Receive Date: 20130613
  Receipt Date: 20130613
  Transmission Date: 20140414
  Serious: Yes (Hospitalization)
  Sender: FDA-Public Use
  Company Number: US-BAYER-2013-071687

PATIENT
  Age: 27 Year
  Sex: Female

DRUGS (12)
  1. YAZ [Suspect]
  2. YASMIN [Suspect]
  3. GIANVI [Suspect]
  4. PROVENTIL HFA [Concomitant]
     Dosage: 90MCG INHAL
  5. OMEPRAZOLE [Concomitant]
     Dosage: 20 MG, UNK
  6. SINGULAIR [Concomitant]
     Dosage: 10 MG, UNK
  7. NASACORT AQ [Concomitant]
  8. LEVOCETIRIZINE [Concomitant]
     Dosage: 5 MG, UNK
  9. AZELASTINE HYDROCHLORIDE [Concomitant]
     Dosage: 0.05 %, UNK
  10. IBUPROFEN [Concomitant]
     Dosage: 800 MG, UNK
  11. XYZAL [Concomitant]
  12. PRILOSEC [Concomitant]

REACTIONS (2)
  - Pulmonary embolism [Recovering/Resolving]
  - Deep vein thrombosis [None]
